FAERS Safety Report 8371502-0 (Version None)
Quarter: 2012Q2

REPORT INFORMATION
  Report Type: 
  Country: None (occurrence: None)
  Receive Date: 20120517
  Receipt Date: 20120511
  Transmission Date: 20120825
  Serious: Yes (Hospitalization)
  Sender: FDA-Public Use
  Company Number: GER/GER/12/0024317

PATIENT
  Age: 83 Year
  Sex: Female
  Weight: 75 kg

DRUGS (4)
  1. VALOXAN (AGOMELATINE) [Concomitant]
  2. CITALON (CITALOPRAM HYDROBROMIDE) [Concomitant]
  3. VENLAFAXINE [Suspect]
     Indication: DEPRESSION
     Dosage: 0.75 MG, 1 IN 1 D, ORAL
     Route: 048
     Dates: start: 20110901, end: 20111010
  4. ESCITALOPRAM [Concomitant]

REACTIONS (1)
  - HEPATITIS CHOLESTATIC [None]
